FAERS Safety Report 4280650-6 (Version None)
Quarter: 2004Q1

REPORT INFORMATION
  Report Type: 
  Country: None (occurrence: None)
  Receive Date: 20040123
  Receipt Date: 20040113
  Transmission Date: 20041129
  Serious: Yes (Hospitalization)
  Sender: FDA-Public Use
  Company Number: 2004194420JP

PATIENT
  Age: 63 Year
  Sex: Female
  Weight: 46 kg

DRUGS (9)
  1. DOXORUBICIN HCL [Suspect]
     Indication: LYMPHOMA
     Dosage: 50 MG, CYCLIC, IV
     Route: 042
     Dates: start: 20030719, end: 20030809
  2. ENDOXAN(CYCLOPHOSPHAMIDE)POWDER, STERILE [Concomitant]
     Indication: LYMPHOMA
     Dosage: 1 G, CYCLIC, IV
     Route: 042
     Dates: start: 20030719, end: 20030809
  3. ONCOVIN [Suspect]
     Indication: LYMPHOMA
     Dosage: 1.9 MG, CYCLIC, IV
     Route: 042
     Dates: start: 20030719, end: 20030809
  4. NEUTROGIN(LENOGRASTIM) [Concomitant]
     Indication: BONE MARROW DEPRESSION
     Dosage: 100 UG, QD, SUBCUTANEOUS
     Route: 058
     Dates: start: 20030819, end: 20030823
  5. PREDONINE [Concomitant]
  6. ZYLORIC [Concomitant]
  7. LIPITOR [Concomitant]
  8. FAMOTIDINE [Concomitant]
  9. LENDORM [Concomitant]

REACTIONS (4)
  - BLOOD LACTATE DEHYDROGENASE INCREASED [None]
  - DRUG INTERACTION [None]
  - INTERSTITIAL LUNG DISEASE [None]
  - WHITE BLOOD CELL COUNT DECREASED [None]
